FAERS Safety Report 8799151 (Version 1)
Quarter: 2012Q4

REPORT INFORMATION
  Report Type: 
  Country: US (occurrence: US)
  Receive Date: 20120920
  Receipt Date: 20120920
  Transmission Date: 20130627
  Serious: No
  Sender: FDA-Public Use
  Company Number: US-ASTRAZENECA-2012SE14083

PATIENT
  Age: 70 Year
  Sex: Female

DRUGS (26)
  1. LISINOPRIL [Suspect]
     Route: 048
  2. LISINOPRIL [Suspect]
     Route: 048
  3. SEREVENT DISKUS [Concomitant]
  4. FLOVENT INHALER [Concomitant]
  5. JANUVIA [Concomitant]
  6. MOBIC [Concomitant]
  7. LANSOPRAZOLE [Concomitant]
  8. ALLEGRA [Concomitant]
  9. NOVOLOG INSULIN [Concomitant]
  10. LANTUS [Concomitant]
  11. DILTIAZEM [Concomitant]
  12. GLIPIZIDE [Concomitant]
  13. EZETIMIBE [Concomitant]
  14. ASPIRIN [Concomitant]
  15. OXYCODONE [Concomitant]
  16. TYLENOL [Concomitant]
     Indication: PAIN
  17. CYCLOBENZAPRINE [Concomitant]
     Indication: MUSCLE SPASMS
  18. FISH OIL [Concomitant]
  19. CALCIUM CARBONATE [Concomitant]
  20. FERROUS SULFATE [Concomitant]
  21. COD LIVER OIL [Concomitant]
  22. HYDROCHLOROTHIAZIDE [Concomitant]
  23. FUROSEMIDE [Concomitant]
     Indication: OEDEMA
  24. ALBUTEROL INHALER [Concomitant]
     Indication: ASTHMA
  25. EPIPEN INJECTOR [Concomitant]
     Indication: ARTHROPOD STING
  26. DOCUSATE SODIUM [Concomitant]
     Indication: CONSTIPATION

REACTIONS (11)
  - Back pain [Unknown]
  - Muscle spasms [Unknown]
  - Tremor [Unknown]
  - Selective mutism [Unknown]
  - Pain [Unknown]
  - Arthralgia [Unknown]
  - Asthenia [Unknown]
  - Nausea [Unknown]
  - Vomiting [Unknown]
  - Hyperhidrosis [Unknown]
  - Fatigue [Unknown]
